FAERS Safety Report 14765307 (Version 1)
Quarter: 2018Q2

REPORT INFORMATION
  Report Type: Spontaneous
  Country: US (occurrence: US)
  Receive Date: 20180416
  Receipt Date: 20180416
  Transmission Date: 20180711
  Serious: Yes (Other)
  Sender: FDA-Public Use
  Company Number: US-OTSUKA-2018_009039

PATIENT
  Sex: Female

DRUGS (1)
  1. REXULTI [Suspect]
     Active Substance: BREXPIPRAZOLE
     Indication: PRODUCT USED FOR UNKNOWN INDICATION
     Dosage: UNK
     Route: 065
     Dates: start: 2016, end: 2018

REACTIONS (5)
  - Alanine aminotransferase increased [Unknown]
  - Hypothyroidism [Unknown]
  - Osteoporosis [Unknown]
  - Aspartate aminotransferase increased [Unknown]
  - Functional gastrointestinal disorder [Unknown]
